FAERS Safety Report 18022417 (Version 1)
Quarter: 2020Q3

REPORT INFORMATION
  Report Type: Other
  Country: IT (occurrence: IT)
  Receive Date: 20200715
  Receipt Date: 20200715
  Transmission Date: 20201103
  Serious: Yes (Other)
  Sender: FDA-Public Use
  Company Number: IT-ROCHE-2642061

PATIENT
  Age: 68 Year
  Sex: Female
  Weight: 79 kg

DRUGS (5)
  1. OMEPRAZOLE. [Concomitant]
     Active Substance: OMEPRAZOLE
  2. TRASTUZUMAB. [Suspect]
     Active Substance: TRASTUZUMAB
     Indication: BREAST CANCER
     Route: 041
     Dates: start: 20200120, end: 20200427
  3. LETROZOLE. [Concomitant]
     Active Substance: LETROZOLE
     Dates: start: 20191227
  4. ALMARYTM [Concomitant]
     Active Substance: FLECAINIDE ACETATE
  5. CARDICOR [Concomitant]
     Active Substance: BISOPROLOL

REACTIONS (1)
  - Tachyarrhythmia [Not Recovered/Not Resolved]

NARRATIVE: CASE EVENT DATE: 20200427
